FAERS Safety Report 5577144-4 (Version None)
Quarter: 2007Q4

REPORT INFORMATION
  Report Type: 
  Country: None (occurrence: None)
  Receive Date: 20071228
  Receipt Date: 20071217
  Transmission Date: 20080405
  Serious: Yes (Other)
  Sender: FDA-Public Use
  Company Number: US-PFIZER INC-2007055422

PATIENT
  Sex: Female
  Weight: 72.6 kg

DRUGS (2)
  1. CHANTIX [Suspect]
     Indication: SMOKING CESSATION THERAPY
     Route: 048
     Dates: start: 20070101, end: 20070601
  2. XANAX [Concomitant]
     Indication: ANXIETY

REACTIONS (3)
  - CARDIAC DISORDER [None]
  - HEART RATE DECREASED [None]
  - PALPITATIONS [None]
